FAERS Safety Report 5122104-0 (Version None)
Quarter: 2006Q4

REPORT INFORMATION
  Report Type: 
  Country: None (occurrence: None)
  Receive Date: 20061004
  Receipt Date: 20061004
  Transmission Date: 20070319
  Serious: Yes (Life-Threatening, Hospitalization, Other)
  Sender: FDA-Public Use
  Company Number: None

PATIENT
  Sex: Male
  Weight: 101.1521 kg

DRUGS (4)
  1. LISTERINE WHITENING   PFIZER [Suspect]
     Indication: DENTAL TREATMENT
     Dosage: 3-TEASPOONS TWICE DAILY BUCCAL (ONCE)
     Route: 002
     Dates: start: 20060912, end: 20060912
  2. GLYBURIDE [Concomitant]
  3. ASPIRIN [Concomitant]
  4. LISINOPRIL [Concomitant]

REACTIONS (9)
  - ABDOMINAL PAIN UPPER [None]
  - AGEUSIA [None]
  - BLOOD GLUCOSE INCREASED [None]
  - FATIGUE [None]
  - HEADACHE [None]
  - HYPOAESTHESIA ORAL [None]
  - MALAISE [None]
  - ORAL DISCOMFORT [None]
  - POOR QUALITY SLEEP [None]
